FAERS Safety Report 15256155 (Version 1)
Quarter: 2018Q3

REPORT INFORMATION
  Report Type: Spontaneous
  Country: US (occurrence: US)
  Receive Date: 20180808
  Receipt Date: 20180808
  Transmission Date: 20181010
  Serious: Yes (Hospitalization)
  Sender: FDA-Public Use
  Company Number: US-ASTRAZENECA-2018SE98070

PATIENT
  Age: 79 Year
  Sex: Male
  Weight: 65.8 kg

DRUGS (6)
  1. BEVESPI AEROSPHERE [Suspect]
     Active Substance: FORMOTEROL FUMARATE\GLYCOPYRROLATE
     Indication: EMPHYSEMA
     Dosage: 9/4.8 MCGS, 2 PUFFS TWICE DAILY
     Route: 055
  2. NATURE MADE MULTIVITAMIN [Concomitant]
     Indication: SUPPLEMENTATION THERAPY
     Dosage: ONE TABLET, DAILY
     Route: 048
     Dates: start: 2008
  3. ALPRAZOLAM. [Concomitant]
     Active Substance: ALPRAZOLAM
     Indication: DEPRESSION
     Route: 048
     Dates: start: 201701
  4. ESCITALOPRAM [Concomitant]
     Active Substance: ESCITALOPRAM OXALATE
     Indication: DEPRESSION
     Route: 048
     Dates: start: 201701
  5. EQUATE NUTRITION SHAKE [Concomitant]
     Indication: WEIGHT INCREASED
     Dosage: DOSE ONE DRINK, TWO TIMES A DAY
     Route: 048
     Dates: start: 201801
  6. OMEPRAZOLE. [Concomitant]
     Active Substance: OMEPRAZOLE
     Indication: ULCER
     Dates: start: 2008

REACTIONS (11)
  - Back disorder [Unknown]
  - Memory impairment [Unknown]
  - Emphysema [Unknown]
  - Rhinorrhoea [Unknown]
  - Pulmonary mass [Unknown]
  - Ulcer haemorrhage [Unknown]
  - Wrong technique in device usage process [Unknown]
  - Weight decreased [Unknown]
  - Pain in extremity [Unknown]
  - Oropharyngeal pain [Unknown]
  - Dry mouth [Unknown]

NARRATIVE: CASE EVENT DATE: 2008
